FAERS Safety Report 20035719 (Version 1)
Quarter: 2021Q4

REPORT INFORMATION
  Report Type: Report from Study
  Country: US (occurrence: US)
  Receive Date: 20211104
  Receipt Date: 20211104
  Transmission Date: 20220303
  Serious: Yes (Hospitalization)
  Sender: FDA-Public Use
  Company Number: US-BIOVITRUM-2021US9609

PATIENT
  Age: 1 Year
  Sex: Female

DRUGS (4)
  1. SYNAGIS [Suspect]
     Active Substance: PALIVIZUMAB
     Indication: Premature baby
     Dosage: 15.0MG/KG UNKNOWN
     Route: 030
     Dates: start: 20210209
  2. NYSTATIN [Concomitant]
     Active Substance: NYSTATIN
     Indication: Product used for unknown indication
  3. ENFAMIL [Concomitant]
     Active Substance: AMINO ACIDS\CARBOHYDRATES\MINERALS\VITAMINS
     Indication: Product used for unknown indication
  4. MULTIVITAMIN CHEW/CHLD [Concomitant]
     Indication: Product used for unknown indication

REACTIONS (4)
  - Respiratory syncytial virus infection [Unknown]
  - Nasopharyngitis [Unknown]
  - Wheezing [Unknown]
  - Cough [Unknown]

NARRATIVE: CASE EVENT DATE: 20211020
